FAERS Safety Report 12524227 (Version 1)
Quarter: 2016Q3

REPORT INFORMATION
  Report Type: Spontaneous
  Country: US (occurrence: US)
  Receive Date: 20160704
  Receipt Date: 20160704
  Transmission Date: 20161109
  Serious: No
  Sender: FDA-Public Use
  Company Number: US-JNJFOC-20160522596

PATIENT
  Age: 29 Year
  Sex: Male
  Weight: 66.23 kg

DRUGS (8)
  1. PIMOZIDE. [Concomitant]
     Active Substance: PIMOZIDE
     Dosage: DAILY
     Route: 048
  2. TRAMADOL ER [Suspect]
     Active Substance: TRAMADOL HYDROCHLORIDE
     Indication: ABDOMINAL PAIN
     Dosage: ONCE IN 6 HOURS AS NECESSARY
     Route: 048
  3. APRISO [Concomitant]
     Active Substance: MESALAMINE
     Dosage: XR24H, TAKE 4 DAILY
     Route: 065
  4. OMEPRAZOLE. [Concomitant]
     Active Substance: OMEPRAZOLE
     Dosage: TWICE A DAY
     Route: 065
  5. ZOFRAN [Concomitant]
     Active Substance: ONDANSETRON HYDROCHLORIDE
     Dosage: EVERY 6 HOURS AS NECESSARY (PRN)
     Route: 048
  6. CIMZIA [Concomitant]
     Active Substance: CERTOLIZUMAB PEGOL
     Dosage: 2 PER 1 MONTHLY
     Route: 058
  7. TRAMADOL ER [Suspect]
     Active Substance: TRAMADOL HYDROCHLORIDE
     Indication: PAIN
     Dosage: ONCE IN 6 HOURS AS NECESSARY
     Route: 048
  8. ALL DAY ALLERGY [Concomitant]
     Active Substance: CETIRIZINE HYDROCHLORIDE
     Dosage: DAILY
     Route: 065

REACTIONS (4)
  - Nausea [Not Recovered/Not Resolved]
  - Bone pain [Unknown]
  - Abdominal pain [Not Recovered/Not Resolved]
  - Arthralgia [Unknown]

NARRATIVE: CASE EVENT DATE: 201506
